APPROVED DRUG PRODUCT: THIOTHIXENE
Active Ingredient: THIOTHIXENE
Strength: 5MG
Dosage Form/Route: CAPSULE;ORAL
Application: A071529 | Product #001
Applicant: EPIC PHARMA LLC
Approved: Jun 24, 1987 | RLD: No | RS: No | Type: DISCN